FAERS Safety Report 4613636-X (Version None)
Quarter: 2005Q1

REPORT INFORMATION
  Report Type: 
  Country: None (occurrence: None)
  Receive Date: 20050318
  Receipt Date: 20050318
  Transmission Date: 20050727
  Serious: Yes (Hospitalization)
  Sender: FDA-Public Use
  Company Number: None

PATIENT
  Sex: Female
  Weight: 7.2576 kg

DRUGS (1)
  1. AMOXIL [Suspect]
     Indication: EAR INFECTION
     Dosage: PO, STARTED 4 DAYS PRIOR TO ER VISIT
     Route: 048

REACTIONS (3)
  - PRURITUS [None]
  - RASH MACULAR [None]
  - URTICARIA [None]
